FAERS Safety Report 25605641 (Version 2)
Quarter: 2025Q3

REPORT INFORMATION
  Report Type: Spontaneous
  Country: US (occurrence: US)
  Receive Date: 20250725
  Receipt Date: 20250807
  Transmission Date: 20251020
  Serious: No
  Sender: SANOFI AVENTIS
  Company Number: US-SA-2025SA212726

PATIENT
  Age: 40 Year
  Sex: Male

DRUGS (2)
  1. TZIELD [Suspect]
     Active Substance: TEPLIZUMAB-MZWV
     Route: 065
     Dates: end: 20250720
  2. TZIELD [Suspect]
     Active Substance: TEPLIZUMAB-MZWV
     Route: 065
     Dates: start: 202507, end: 202507

REACTIONS (8)
  - Liver disorder [Unknown]
  - Infusion site pruritus [Unknown]
  - Condition aggravated [Unknown]
  - Infusion site erythema [Unknown]
  - Infusion site rash [Unknown]
  - Fatigue [Unknown]
  - Nausea [Unknown]
  - Pyrexia [Unknown]

NARRATIVE: CASE EVENT DATE: 20250101
